FAERS Safety Report 5598432-1 (Version None)
Quarter: 2008Q1

REPORT INFORMATION
  Report Type: 
  Country: None (occurrence: None)
  Receive Date: 20080122
  Receipt Date: 20080115
  Transmission Date: 20080703
  Serious: Yes (Life-Threatening, Disabling)
  Sender: FDA-Public Use
  Company Number: JP-ASTRAZENECA-2008AP00386

PATIENT
  Age: 70 Year
  Sex: Male
  Weight: 55 kg

DRUGS (2)
  1. MARCAINE HYDROCHLORIDE PRESERVATIVE FREE [Suspect]
     Indication: SPINAL ANAESTHESIA
     Route: 037
     Dates: start: 20071212, end: 20071212
  2. PANSPORIN [Suspect]
     Indication: INFECTION PROPHYLAXIS
     Route: 041
     Dates: start: 20071212, end: 20071212

REACTIONS (2)
  - ANAPHYLACTIC SHOCK [None]
  - OVERDOSE [None]
